FAERS Safety Report 9858218 (Version 1)
Quarter: 2014Q1

REPORT INFORMATION
  Report Type: Spontaneous
  Country: FR (occurrence: FR)
  Receive Date: 20140131
  Receipt Date: 20140131
  Transmission Date: 20141002
  Serious: Yes (Other)
  Sender: FDA-Public Use
  Company Number: FR-JNJFOC-20140115649

PATIENT
  Age: 62 Year
  Sex: Female

DRUGS (1)
  1. EPITOMAX [Suspect]
     Indication: PARTIAL SEIZURES
     Route: 048

REACTIONS (2)
  - Eczema [Recovered/Resolved]
  - Face oedema [Recovered/Resolved]
